FAERS Safety Report 23714648 (Version 1)
Quarter: 2024Q2

REPORT INFORMATION
  Report Type: Spontaneous
  Country: US (occurrence: US)
  Receive Date: 20240406
  Receipt Date: 20240406
  Transmission Date: 20240716
  Serious: Yes (Other)
  Sender: FDA-Public Use
  Company Number: US-AUROBINDO-AUR-APL-2024-015317

PATIENT
  Age: 68 Year
  Sex: Female
  Weight: 69.853 kg

DRUGS (1)
  1. TAMSULOSIN HYDROCHLORIDE [Suspect]
     Active Substance: TAMSULOSIN HYDROCHLORIDE
     Indication: Nephrolithiasis
     Dosage: UNK,ONCE A DAY AT BED TIME
     Route: 048
     Dates: start: 20230727, end: 20240216

REACTIONS (5)
  - Colon injury [Not Recovered/Not Resolved]
  - Abdominal pain lower [Unknown]
  - Pain [Unknown]
  - Product use in unapproved indication [Unknown]
  - Dizziness [Unknown]
